FAERS Safety Report 18488168 (Version 1)
Quarter: 2020Q4

REPORT INFORMATION
  Report Type: Spontaneous
  Country: US (occurrence: US)
  Receive Date: 20201110
  Receipt Date: 20201110
  Transmission Date: 20210114
  Serious: Yes (Death, Other)
  Sender: FDA-Public Use
  Company Number: US-PURDUE-USA-2020-0172275

PATIENT
  Sex: Female

DRUGS (6)
  1. OXYCONTIN [Suspect]
     Active Substance: OXYCODONE HYDROCHLORIDE
     Indication: ARTHRALGIA
     Dosage: UNK
     Route: 048
  2. OXYCODONE/ ACETAMINOPHEN TABLETS [Suspect]
     Active Substance: ACETAMINOPHEN\OXYCODONE HYDROCHLORIDE
     Indication: ARTHRALGIA
     Dosage: 1 TABLET, Q8H
     Route: 048
  3. HYDRALAZINE [Concomitant]
     Active Substance: HYDRALAZINE HYDROCHLORIDE
     Indication: ESSENTIAL HYPERTENSION
     Dosage: 1 TABLET, TID
     Dates: start: 20130811
  4. ASPERCREME NOS [Concomitant]
     Active Substance: MENTHOL\TROLAMINE SALICYLATE
     Indication: BUTTOCK INJURY
     Dosage: UNK, BID
     Dates: start: 20150126
  5. VITAMIN D                          /00107901/ [Concomitant]
     Active Substance: ERGOCALCIFEROL
     Indication: VITAMIN D DEFICIENCY
     Dosage: 1 CAPSL, DAILY
     Dates: start: 20150126
  6. OXYCODONE/ ACETAMINOPHEN TABLETS [Suspect]
     Active Substance: ACETAMINOPHEN\OXYCODONE HYDROCHLORIDE
     Indication: OSTEOARTHRITIS
     Dosage: 1 TABLET, Q4H
     Route: 048
     Dates: start: 20140430

REACTIONS (5)
  - Cerebrovascular accident [Fatal]
  - Seizure [Unknown]
  - Hepatitis [Unknown]
  - Overdose [Unknown]
  - Dependence [Unknown]
